FAERS Safety Report 16791872 (Version 1)
Quarter: 2019Q3

REPORT INFORMATION
  Report Type: Spontaneous
  Country: IN (occurrence: IN)
  Receive Date: 20190910
  Receipt Date: 20190910
  Transmission Date: 20191005
  Serious: Yes (Death)
  Sender: FDA-Public Use
  Company Number: IN-MYLANLABS-2019M1084772

PATIENT
  Sex: Female

DRUGS (1)
  1. HERTRAZ 440 [Suspect]
     Active Substance: TRASTUZUMAB
     Indication: BREAST CANCER
     Dosage: 440 MILLIGRAM (1 IN 3 WEEK)
     Route: 042
     Dates: start: 20161109, end: 201808

REACTIONS (2)
  - Disease progression [Fatal]
  - Breast cancer [Fatal]
